FAERS Safety Report 12246097 (Version 1)
Quarter: 2016Q2

REPORT INFORMATION
  Report Type: Spontaneous
  Country: US (occurrence: US)
  Receive Date: 20160407
  Receipt Date: 20160407
  Transmission Date: 20160815
  Serious: Yes (Other)
  Sender: FDA-Public Use
  Company Number: US-MYLANLABS-2016M1014251

PATIENT

DRUGS (6)
  1. RIFAMPICIN [Suspect]
     Active Substance: RIFAMPIN
     Indication: PROGRESSIVE FAMILIAL INTRAHEPATIC CHOLESTASIS
     Route: 065
  2. SODIUM PHENYLBUTYRATE. [Interacting]
     Active Substance: SODIUM PHENYLBUTYRATE
     Dosage: 500 MG/KG/DAY
     Route: 048
  3. GLYCEROL PHENYLBUTYRATE [Interacting]
     Active Substance: GLYCEROL PHENYLBUTYRATE
     Dosage: 8.7 G/DAY
     Route: 048
  4. URSODEOXYCHOLIC ACID [Concomitant]
     Active Substance: URSODIOL
     Indication: PROGRESSIVE FAMILIAL INTRAHEPATIC CHOLESTASIS
     Route: 065
  5. GLYCEROL PHENYLBUTYRATE [Interacting]
     Active Substance: GLYCEROL PHENYLBUTYRATE
     Indication: PROGRESSIVE FAMILIAL INTRAHEPATIC CHOLESTASIS
     Dosage: 7.1 G/DAY, LATER DOSE INCREASED TO 8.7 G/DAY
     Route: 048
  6. SODIUM PHENYLBUTYRATE. [Interacting]
     Active Substance: SODIUM PHENYLBUTYRATE
     Indication: PROGRESSIVE FAMILIAL INTRAHEPATIC CHOLESTASIS
     Dosage: 400MG/KG/DAY, LATER DOSE INCREASED TO 500 MG/KG/DAY
     Route: 048

REACTIONS (3)
  - Drug interaction [Recovered/Resolved]
  - Toxicity to various agents [Recovered/Resolved]
  - Hepatotoxicity [Recovered/Resolved]
